FAERS Safety Report 6855216-1 (Version None)
Quarter: 2010Q3

REPORT INFORMATION
  Report Type: 
  Country: None (occurrence: None)
  Receive Date: 20100718
  Receipt Date: 20100714
  Transmission Date: 20110219
  Serious: Yes (Death)
  Sender: FDA-Public Use
  Company Number: US-BRISTOL-MYERS SQUIBB COMPANY-15190945

PATIENT
  Age: 53 Year
  Sex: Female

DRUGS (1)
  1. BARACLUDE [Suspect]
     Indication: HEPATITIS B
     Dosage: PATIENT WAS DUE TO RECEIVE THE DRUG UNTILL 20-JUL-2010
     Dates: start: 20090805

REACTIONS (1)
  - DEATH [None]
